FAERS Safety Report 4431206-3 (Version None)
Quarter: 2004Q3

REPORT INFORMATION
  Report Type: 
  Country: None (occurrence: None)
  Receive Date: 20040817
  Receipt Date: 20040802
  Transmission Date: 20050211
  Serious: No
  Sender: FDA-Public Use
  Company Number: FR-2004-029747

PATIENT
  Age: 1 Day
  Sex: Male
  Weight: 0.7 kg

DRUGS (1)
  1. MIRENA [Suspect]
     Indication: CONTRACEPTION
     Dosage: 20 UG, CONT, TRANSPLACENTAL
     Route: 064
     Dates: start: 20031126, end: 20040702

REACTIONS (6)
  - DRUG EXPOSURE DURING PREGNANCY [None]
  - FOETAL GROWTH RETARDATION [None]
  - HAEMATOMA [None]
  - INDUCED LABOUR [None]
  - METRORRHAGIA [None]
  - PLACENTAL DISORDER [None]
